FAERS Safety Report 4432591-9 (Version None)
Quarter: 2004Q3

REPORT INFORMATION
  Report Type: 
  Country: None (occurrence: None)
  Receive Date: 20040823
  Receipt Date: 20040811
  Transmission Date: 20050211
  Serious: Yes (Hospitalization)
  Sender: FDA-Public Use
  Company Number: 2004055451

PATIENT
  Age: 19 Year
  Sex: Female

DRUGS (1)
  1. ELETRIPTAN (ELETRIPTAN) [Suspect]
     Indication: MIGRAINE
     Dosage: ORAL
     Route: 048

REACTIONS (1)
  - BREAST NEOPLASM [None]
